FAERS Safety Report 6274718-2 (Version None)
Quarter: 2009Q3

REPORT INFORMATION
  Report Type: 
  Country: None (occurrence: None)
  Receive Date: 20090721
  Receipt Date: 20070807
  Transmission Date: 20100115
  Serious: Yes (Hospitalization, Other)
  Sender: FDA-Public Use
  Company Number: US-ASTRAZENECA-2007UW15783

PATIENT
  Age: 528 Month
  Sex: Male
  Weight: 104.3 kg

DRUGS (33)
  1. SEROQUEL [Suspect]
     Indication: BIPOLAR DISORDER
     Route: 048
     Dates: start: 20001211
  2. SEROQUEL [Suspect]
     Indication: DEPRESSION
     Route: 048
     Dates: start: 20001211
  3. SEROQUEL [Suspect]
     Indication: SLEEP DISORDER
     Route: 048
     Dates: start: 20001211
  4. SEROQUEL [Suspect]
     Dosage: 25 MG TO 200 MG
     Route: 048
     Dates: start: 20001127
  5. SEROQUEL [Suspect]
     Dosage: 25 MG TO 200 MG
     Route: 048
     Dates: start: 20001127
  6. SEROQUEL [Suspect]
     Dosage: 25 MG TO 200 MG
     Route: 048
     Dates: start: 20001127
  7. TRAZODONE HCL [Concomitant]
  8. LAMICTAL [Concomitant]
  9. LAMICTAL [Concomitant]
     Dates: start: 20030212
  10. LAMICTAL [Concomitant]
     Dates: start: 20060419
  11. TRILEPTAL [Concomitant]
  12. TRILEPTAL [Concomitant]
     Dates: start: 20030212
  13. PAXIL [Concomitant]
     Dosage: 10 TO 40 MG
     Dates: start: 20001127
  14. TRICOR [Concomitant]
     Dosage: 150 MG, 167 MG DAILY
     Dates: start: 20010507
  15. FLOVENT [Concomitant]
     Dosage: 100/50 MG 1 PUFF Q 12H
     Dates: start: 20010507
  16. DIAZEPAM [Concomitant]
     Indication: INSOMNIA
     Dosage: 10 MG AS NEEDED
     Dates: start: 20060419
  17. NORVASC [Concomitant]
     Indication: HYPERTENSION
     Dates: start: 20010507
  18. ADVAIR HFA [Concomitant]
     Dosage: 1 PUFF Q.12H.AS NEEDED
     Dates: start: 20060419
  19. GLIPIZIDE [Concomitant]
     Dosage: 100/50, 10 MG TWO TIMES A DAY
     Dates: start: 20060419
  20. GLIPIZIDE [Concomitant]
     Dates: start: 20040426
  21. WELCHOL [Concomitant]
     Dosage: 625 MG 2 TABLETS THREE TIMES A DAY
     Dates: start: 20060419
  22. ZETIA [Concomitant]
     Dates: start: 20060419
  23. METFORMIN HCL [Concomitant]
     Dates: start: 20060419
  24. ACTOS [Concomitant]
     Dates: start: 20060419
  25. DIOVAN [Concomitant]
     Dates: start: 20060419
  26. DARVOCET-N 100 [Concomitant]
     Dosage: 100, ONE PER ORAL DAILY 4H. IF NEEDED
     Dates: start: 20060419
  27. AVANDAMET [Concomitant]
     Dosage: 2/500 TWO TABLETS TWO TIMES A DAY
     Dates: start: 20040315
  28. EFFEXOR [Concomitant]
     Dates: start: 20010112
  29. VIAGRA [Concomitant]
     Dosage: 100 MG
     Dates: start: 20010112
  30. MAXALT [Concomitant]
     Dates: start: 20010112
  31. MECLIZINE [Concomitant]
     Dates: start: 20030924
  32. LANSOPRAZOLE [Concomitant]
     Dates: start: 20010507
  33. LEVOXYL [Concomitant]
     Dates: start: 20040315

REACTIONS (7)
  - ANION GAP INCREASED [None]
  - CHRONIC OBSTRUCTIVE PULMONARY DISEASE [None]
  - DIABETES MELLITUS [None]
  - HYPOXIA [None]
  - PNEUMONIA [None]
  - RESPIRATORY DISORDER [None]
  - TYPE 2 DIABETES MELLITUS [None]
